FAERS Safety Report 23950160 (Version 1)
Quarter: 2024Q2

REPORT INFORMATION
  Report Type: Other
  Country: GB (occurrence: GB)
  Receive Date: 20240607
  Receipt Date: 20240607
  Transmission Date: 20240716
  Serious: Yes (Other)
  Sender: FDA-Public Use
  Company Number: None

PATIENT
  Sex: Male

DRUGS (1)
  1. OMNIPAQUE [Suspect]
     Active Substance: IOHEXOL
     Indication: Computerised tomogram intestine
     Dosage: 50 MLS ORALLY TWO DOSES
     Route: 065

REACTIONS (2)
  - Sudden hearing loss [Recovering/Resolving]
  - Ear pain [Recovering/Resolving]
